FAERS Safety Report 5638301-1 (Version None)
Quarter: 2008Q1

REPORT INFORMATION
  Report Type: 
  Country: None (occurrence: None)
  Receive Date: 20080226
  Receipt Date: 20080219
  Transmission Date: 20080703
  Serious: Yes (Other)
  Sender: FDA-Public Use
  Company Number: JP-BRISTOL-MYERS SQUIBB COMPANY-14083554

PATIENT
  Age: 52 Year
  Sex: Female
  Weight: 38 kg

DRUGS (8)
  1. ABATACEPT [Suspect]
     Indication: RHEUMATOID ARTHRITIS
     Dosage: INTERRUPTED ON 23JAN08
     Route: 041
     Dates: start: 20070316, end: 20080123
  2. PREDONINE [Concomitant]
     Indication: RHEUMATOID ARTHRITIS
     Dosage: FORMULATION: TAB
     Route: 048
  3. CLINORIL [Concomitant]
     Indication: RHEUMATOID ARTHRITIS
     Dosage: FORMULATION: TAB
     Route: 048
  4. KETOPROFEN [Concomitant]
     Indication: RHEUMATOID ARTHRITIS
     Dosage: FORMULATION: TAP
     Route: 061
  5. INTEBAN [Concomitant]
     Indication: RHEUMATOID ARTHRITIS
     Dosage: FORMULATION: OINTMENT
     Route: 062
     Dates: start: 20060901
  6. PROMAC [Concomitant]
     Indication: GASTRITIS PROPHYLAXIS
     Dosage: FORMULATION: GRA
     Route: 048
  7. SELBEX [Concomitant]
     Indication: GASTRITIS PROPHYLAXIS
     Dosage: FORMULATION: TAB
     Route: 048
  8. RHEUMATREX [Concomitant]
     Indication: RHEUMATOID ARTHRITIS
     Dosage: FORMULATION: CAP
     Route: 048

REACTIONS (1)
  - GASTRIC CANCER [None]
